FAERS Safety Report 7966183-1 (Version None)
Quarter: 2011Q4

REPORT INFORMATION
  Report Type: 
  Country: None (occurrence: None)
  Receive Date: 20111208
  Receipt Date: 20111130
  Transmission Date: 20120403
  Serious: Yes (Other)
  Sender: FDA-Public Use
  Company Number: PHEH2011US03172

PATIENT
  Sex: Female

DRUGS (13)
  1. RECLAST [Suspect]
     Indication: OSTEOPOROSIS
     Dosage: 5 MG/100 ML, ONCE YEARLY
     Route: 042
     Dates: start: 20100811
  2. FOLIC ACID [Concomitant]
     Dosage: 1 MG, QD
     Route: 048
  3. TYLENOL PM [Concomitant]
     Dosage: 25-500 MG-MG/ML 1 TABLET QHS PRN
     Route: 048
  4. ZANTAC [Concomitant]
     Dosage: 150 MG, 1 TABLET AS NEEDED
     Route: 048
  5. LEVOTHYROXINE SODIUM [Concomitant]
     Dosage: 50 UG, QD
     Route: 048
  6. METHOTREXATE SODIUM [Concomitant]
     Dosage: 2.5 MG, 8 TABLETS EVERY MONDAY
     Route: 048
  7. MULTI-VITAMINS [Concomitant]
     Dosage: 1 TABLET QD
     Route: 048
  8. VICODIN [Concomitant]
     Dosage: 5-500 MG, 1 TABLET PRN
     Route: 048
  9. CALCIUM WITH VITAMIN D [Concomitant]
     Dosage: 600-200 MG-UNIT, 1 TABLET BID
     Route: 048
  10. COZAAR [Concomitant]
     Dosage: 100 MG, QD
  11. SYNTHROID [Concomitant]
  12. ASPIRIN [Concomitant]
     Dosage: 81 MG, QD
     Route: 048
  13. SIMVASTATIN [Concomitant]
     Dosage: 80 MG, 1 TABLET HS
     Route: 048

REACTIONS (29)
  - OROPHARYNGEAL PAIN [None]
  - DEPRESSION [None]
  - HEADACHE [None]
  - TREMOR [None]
  - JOINT SWELLING [None]
  - DRUG INTOLERANCE [None]
  - PAIN [None]
  - VISUAL IMPAIRMENT [None]
  - FEELING HOT [None]
  - MUSCULOSKELETAL STIFFNESS [None]
  - ANXIETY [None]
  - PYREXIA [None]
  - MYALGIA [None]
  - ARTHRALGIA [None]
  - BACK PAIN [None]
  - CHEST PAIN [None]
  - BLOOD PRESSURE INCREASED [None]
  - INFLUENZA LIKE ILLNESS [None]
  - GASTROOESOPHAGEAL REFLUX DISEASE [None]
  - CHILLS [None]
  - DYSPHAGIA [None]
  - FEELING ABNORMAL [None]
  - MALAISE [None]
  - PAIN IN JAW [None]
  - JOINT RANGE OF MOTION DECREASED [None]
  - EATING DISORDER [None]
  - MUSCULOSKELETAL PAIN [None]
  - FATIGUE [None]
  - DYSPNOEA [None]
